FAERS Safety Report 23863203 (Version 1)
Quarter: 2024Q2

REPORT INFORMATION
  Report Type: Spontaneous
  Country: AU (occurrence: AU)
  Receive Date: 20240516
  Receipt Date: 20240516
  Transmission Date: 20240716
  Serious: Yes (Hospitalization, Other)
  Sender: FDA-Public Use
  Company Number: AU-BRISTOL-MYERS SQUIBB COMPANY-2024-073166

PATIENT
  Age: 48 Year
  Sex: Female

DRUGS (10)
  1. DASATINIB [Suspect]
     Active Substance: DASATINIB
     Indication: Product used for unknown indication
     Dates: start: 201412
  2. DASATINIB [Suspect]
     Active Substance: DASATINIB
  3. ASCIMINIB [Suspect]
     Active Substance: ASCIMINIB
     Indication: Product used for unknown indication
  4. IMATINIB [Suspect]
     Active Substance: IMATINIB
     Indication: Product used for unknown indication
     Dates: start: 2009
  5. IMATINIB [Suspect]
     Active Substance: IMATINIB
     Dates: start: 201111
  6. NILOTINIB [Suspect]
     Active Substance: NILOTINIB
     Indication: Product used for unknown indication
     Dates: start: 201406
  7. PONATINIB [Suspect]
     Active Substance: PONATINIB
     Indication: Product used for unknown indication
     Dates: start: 201708
  8. PONATINIB [Suspect]
     Active Substance: PONATINIB
  9. PONATINIB [Suspect]
     Active Substance: PONATINIB
     Dates: start: 201801
  10. PONATINIB [Suspect]
     Active Substance: PONATINIB
     Dates: start: 201805

REACTIONS (10)
  - Treatment failure [Unknown]
  - Transient ischaemic attack [Unknown]
  - Pancreatitis [Unknown]
  - Cerebral vasoconstriction [Unknown]
  - Arrhythmia [Unknown]
  - Acute myocardial infarction [Unknown]
  - Supraventricular tachycardia [Unknown]
  - Lipase increased [Unknown]
  - Drug intolerance [Unknown]
  - Treatment noncompliance [Unknown]

NARRATIVE: CASE EVENT DATE: 20111101
